FAERS Safety Report 24851108 (Version 1)
Quarter: 2025Q1

REPORT INFORMATION
  Report Type: Spontaneous
  Country: US (occurrence: US)
  Receive Date: 20250116
  Receipt Date: 20250116
  Transmission Date: 20250409
  Serious: Yes (Death, Other)
  Sender: AMGEN
  Company Number: US-AMGEN-USASP2025003700

PATIENT

DRUGS (8)
  1. FILGRASTIM [Suspect]
     Active Substance: FILGRASTIM
     Indication: Acute myeloid leukaemia
     Route: 065
  2. VENETOCLAX [Concomitant]
     Active Substance: VENETOCLAX
     Route: 065
  3. AZACITIDINE [Concomitant]
     Active Substance: AZACITIDINE
     Route: 065
  4. CYTARABINE [Concomitant]
     Active Substance: CYTARABINE
     Route: 065
  5. IDARUBICIN [Concomitant]
     Active Substance: IDARUBICIN
     Route: 065
  6. MIDOSTAURIN [Concomitant]
     Active Substance: MIDOSTAURIN
     Route: 065
  7. FLUDARABINE [Concomitant]
     Active Substance: FLUDARABINE PHOSPHATE
     Route: 065
  8. CLOFARABINE [Concomitant]
     Active Substance: CLOFARABINE
     Route: 065

REACTIONS (4)
  - Death [Fatal]
  - Acute myeloid leukaemia [Unknown]
  - Fungal infection [Unknown]
  - Therapy non-responder [Unknown]
